FAERS Safety Report 15503169 (Version 1)
Quarter: 2018Q4

REPORT INFORMATION
  Report Type: Spontaneous
  Country: US (occurrence: US)
  Receive Date: 20181008
  Receipt Date: 20181008
  Transmission Date: 20190205
  Serious: Yes (Life-Threatening)
  Sender: FDA-Public Use
  Company Number: None

PATIENT
  Age: 65 Year
  Sex: Female
  Weight: 76 kg

DRUGS (5)
  1. PRAVASTATIN 40 MG DAILY [Concomitant]
  2. LEVOTHYROXINE 50 MCG DAILY [Concomitant]
  3. WARFARIN 2 MG [Concomitant]
     Active Substance: WARFARIN
  4. TIKOSYN [Suspect]
     Active Substance: DOFETILIDE
     Indication: ATRIAL FIBRILLATION
     Route: 048
     Dates: start: 20180724, end: 20180725
  5. METOPROLOL TARTRATE 100 MG TWICE DAILY [Concomitant]

REACTIONS (1)
  - Torsade de pointes [None]

NARRATIVE: CASE EVENT DATE: 20180725
